FAERS Safety Report 24782600 (Version 1)
Quarter: 2024Q4

REPORT INFORMATION
  Report Type: Spontaneous
  Country: PT (occurrence: PT)
  Receive Date: 20241227
  Receipt Date: 20241227
  Transmission Date: 20250115
  Serious: Yes (Hospitalization)
  Sender: MYLAN
  Company Number: PT-MYLANLABS-2024M1115145

PATIENT
  Age: 29 Year
  Sex: Female

DRUGS (2)
  1. ROPIVACAINE [Suspect]
     Active Substance: ROPIVACAINE
     Indication: Pain management
     Dosage: UNK, A TOTAL OF 10ML BOLUS OF 0.2% ROPIVACAINE
     Route: 008
  2. SUFENTANIL [Suspect]
     Active Substance: SUFENTANIL
     Indication: Pain management
     Dosage: UNK
     Route: 008

REACTIONS (4)
  - Accidental high spinal anaesthesia [Recovering/Resolving]
  - Hypotension [Recovering/Resolving]
  - Paraesthesia [Recovering/Resolving]
  - Maternal exposure during delivery [Recovered/Resolved]
